FAERS Safety Report 6498215-4 (Version None)
Quarter: 2009Q4

REPORT INFORMATION
  Report Type: 
  Country: None (occurrence: None)
  Receive Date: 20091215
  Receipt Date: 20091208
  Transmission Date: 20100525
  Serious: Yes (Death)
  Sender: FDA-Public Use
  Company Number: A0834871A

PATIENT
  Sex: Female

DRUGS (13)
  1. TYKERB [Suspect]
     Indication: DRUG USE FOR UNKNOWN INDICATION
     Dosage: 1250MGD PER DAY
     Route: 048
     Dates: end: 20091022
  2. LEXAPRO [Concomitant]
  3. ASCORBIC ACID [Concomitant]
     Dosage: 500MG TWICE PER DAY
  4. NITROGLYCERIN [Concomitant]
     Dosage: .2MG IN THE MORNING
     Route: 061
  5. ASPIRIN [Concomitant]
     Dosage: 325MG IN THE MORNING
  6. TRAZODONE HCL [Concomitant]
     Dosage: 50MG AT NIGHT
  7. HYDROCODONE [Concomitant]
     Indication: PAIN
  8. CENTRUM SILVER [Concomitant]
  9. LOVAZA [Concomitant]
     Dosage: 1G PER DAY
  10. BUMETANIDE [Concomitant]
     Dosage: 1MG PER DAY
  11. LEVOTHYROXINE SODIUM [Concomitant]
     Dosage: 50MCG PER DAY
  12. POTASSIUM CHLORIDE [Concomitant]
     Dosage: 20MEQ IN THE MORNING
  13. RADIATION THERAPY [Concomitant]

REACTIONS (3)
  - DEATH [None]
  - PERIPHERAL COLDNESS [None]
  - SKIN DISCOLOURATION [None]
